FAERS Safety Report 7572162-9 (Version None)
Quarter: 2011Q2

REPORT INFORMATION
  Report Type: 
  Country: None (occurrence: None)
  Receive Date: 20110624
  Receipt Date: 20110617
  Transmission Date: 20111010
  Serious: Yes (Hospitalization, Other)
  Sender: FDA-Public Use
  Company Number: US-ABBOTT-11P-163-0733548-00

PATIENT
  Sex: Male
  Weight: 97.61 kg

DRUGS (13)
  1. CARVEDILOL [Concomitant]
     Indication: CARDIAC DISORDER
  2. GLIMEPIRIDE [Concomitant]
     Indication: DIABETES MELLITUS
  3. ANDROGEL [Suspect]
     Indication: BLOOD TESTOSTERONE DECREASED
     Dates: start: 20000101
  4. MULTIVITAMIN WITH MINERALS [Concomitant]
     Indication: VITAMIN SUPPLEMENTATION
  5. MULTIVITAMIN WITH MINERALS [Concomitant]
     Indication: MINERAL SUPPLEMENTATION
  6. OXYGEN [Concomitant]
     Indication: SLEEP APNOEA SYNDROME
     Dosage: C-PAP
  7. TAMSULOSIN HCL [Concomitant]
     Indication: PROSTATOMEGALY
  8. DIOVAN [Concomitant]
     Indication: HYPERTENSION
  9. PRAVASTATIN [Concomitant]
     Indication: BLOOD CHOLESTEROL INCREASED
  10. LORAZEPAM [Concomitant]
     Indication: ANXIETY
  11. ASPIRIN [Concomitant]
     Indication: PRODUCT USED FOR UNKNOWN INDICATION
  12. VIAGRA [Concomitant]
     Indication: PRODUCT USED FOR UNKNOWN INDICATION
  13. ANDROGEL [Suspect]

REACTIONS (4)
  - HEART RATE DECREASED [None]
  - FATIGUE [None]
  - SLEEP APNOEA SYNDROME [None]
  - ASTHENIA [None]
